FAERS Safety Report 5279236-6 (Version None)
Quarter: 2007Q1

REPORT INFORMATION
  Report Type: 
  Country: None (occurrence: None)
  Receive Date: 20070322
  Receipt Date: 20060929
  Transmission Date: 20070707
  Serious: Yes (Other)
  Sender: FDA-Public Use
  Company Number: 2007SP004865

PATIENT
  Age: 60 Year
  Sex: Male

DRUGS (38)
  1. RINDERON-V (BETAMETHASONE VALERATE) (BETAMETHASONE VALERATE) [Suspect]
     Dosage: 5 GM; BID;
     Dates: start: 20050328
  2. IFOSFAMIDE [Suspect]
     Indication: LIPOSARCOMA
     Dosage: SEE IMAGE
     Route: 042
     Dates: start: 20050325, end: 20050327
  3. IFOSFAMIDE [Suspect]
     Indication: PERITONEAL SARCOMA
     Dosage: SEE IMAGE
     Route: 042
     Dates: start: 20050325, end: 20050327
  4. IFOSFAMIDE [Suspect]
     Indication: LIPOSARCOMA
     Dosage: SEE IMAGE
     Route: 042
     Dates: start: 20050416, end: 20050418
  5. IFOSFAMIDE [Suspect]
     Indication: PERITONEAL SARCOMA
     Dosage: SEE IMAGE
     Route: 042
     Dates: start: 20050416, end: 20050418
  6. IFOSFAMIDE [Suspect]
     Indication: LIPOSARCOMA
     Dosage: SEE IMAGE
     Route: 042
     Dates: start: 20050511, end: 20050513
  7. IFOSFAMIDE [Suspect]
     Indication: PERITONEAL SARCOMA
     Dosage: SEE IMAGE
     Route: 042
     Dates: start: 20050511, end: 20050513
  8. IFOSFAMIDE [Suspect]
     Indication: LIPOSARCOMA
     Dosage: SEE IMAGE
     Route: 042
     Dates: start: 20050617, end: 20050619
  9. IFOSFAMIDE [Suspect]
     Indication: PERITONEAL SARCOMA
     Dosage: SEE IMAGE
     Route: 042
     Dates: start: 20050617, end: 20050619
  10. DOXORUBICIN HCL [Suspect]
     Indication: LIPOSARCOMA
     Dosage: SEE IMAGE
     Route: 042
     Dates: start: 20050325, end: 20050327
  11. DOXORUBICIN HCL [Suspect]
     Indication: PERITONEAL SARCOMA
     Dosage: SEE IMAGE
     Route: 042
     Dates: start: 20050325, end: 20050327
  12. DOXORUBICIN HCL [Suspect]
     Indication: LIPOSARCOMA
     Dosage: SEE IMAGE
     Route: 042
     Dates: start: 20050416, end: 20050418
  13. DOXORUBICIN HCL [Suspect]
     Indication: PERITONEAL SARCOMA
     Dosage: SEE IMAGE
     Route: 042
     Dates: start: 20050416, end: 20050418
  14. DOXORUBICIN HCL [Suspect]
     Indication: LIPOSARCOMA
     Dosage: SEE IMAGE
     Route: 042
     Dates: start: 20050511, end: 20050513
  15. DOXORUBICIN HCL [Suspect]
     Indication: PERITONEAL SARCOMA
     Dosage: SEE IMAGE
     Route: 042
     Dates: start: 20050511, end: 20050513
  16. DOXORUBICIN HCL [Suspect]
     Indication: LIPOSARCOMA
     Dosage: SEE IMAGE
     Route: 042
     Dates: start: 20050617, end: 20050619
  17. DOXORUBICIN HCL [Suspect]
     Indication: PERITONEAL SARCOMA
     Dosage: SEE IMAGE
     Route: 042
     Dates: start: 20050617, end: 20050619
  18. SALICYLAMIDE/ACETAMINOPHEN/ANHYDROUS CAFFEINE/PROMETHAZINE METHYLENEDI [Concomitant]
  19. UROMITEXAN [Concomitant]
  20. CIPROFLOXACIN [Concomitant]
  21. ISODINE GARGLE [Concomitant]
  22. SALIPARA CODEINE [Concomitant]
  23. MARZULENE S [Concomitant]
  24. MAGNESIUM OXIDE [Concomitant]
  25. PURSENNID /00142207/ [Concomitant]
  26. TIENAM [Concomitant]
  27. SOLDEM 3A [Concomitant]
  28. MEYLON [Concomitant]
  29. GASTER [Concomitant]
  30. LASIX [Concomitant]
  31. DEXART [Concomitant]
  32. KYTIL [Concomitant]
  33. SOLDEM 3A [Concomitant]
  34. SOLDEM 3A [Concomitant]
  35. ROPION [Concomitant]
  36. ATARAX [Concomitant]
  37. SOLU-CORTEF [Concomitant]
  38. SOLDEM 3A [Concomitant]

REACTIONS (2)
  - NEUTROPHIL COUNT DECREASED [None]
  - WHITE BLOOD CELL COUNT DECREASED [None]
